FAERS Safety Report 5888891-9 (Version None)
Quarter: 2008Q3

REPORT INFORMATION
  Report Type: 
  Country: None (occurrence: None)
  Receive Date: 20080917
  Receipt Date: 20080917
  Transmission Date: 20090109
  Serious: Yes (Hospitalization)
  Sender: FDA-Public Use
  Company Number: None

PATIENT
  Age: 61 Year
  Sex: Female
  Weight: 68.0396 kg

DRUGS (1)
  1. NITROFURANTOIN [Suspect]
     Indication: URINARY TRACT INFECTION
     Dosage: ONE CAPSULE TWICE DAILY PO
     Route: 048
     Dates: start: 20080827, end: 20080905

REACTIONS (8)
  - CHILLS [None]
  - DIPLOPIA [None]
  - DIZZINESS [None]
  - FEELING HOT [None]
  - LIVER FUNCTION TEST ABNORMAL [None]
  - RASH [None]
  - VISUAL IMPAIRMENT [None]
  - WHEEZING [None]
